FAERS Safety Report 13353270 (Version 1)
Quarter: 2017Q1

REPORT INFORMATION
  Report Type: Spontaneous
  Country: US (occurrence: US)
  Receive Date: 20170321
  Receipt Date: 20170321
  Transmission Date: 20170429
  Serious: No
  Sender: FDA-Public Use
  Company Number: US-009507513-1703USA008410

PATIENT
  Age: 62 Year
  Sex: Male

DRUGS (4)
  1. METFORMIN [Suspect]
     Active Substance: METFORMIN HYDROCHLORIDE
  2. TOUJEO [Suspect]
     Active Substance: INSULIN GLARGINE
  3. JANUVIA [Suspect]
     Active Substance: SITAGLIPTIN PHOSPHATE
  4. TANZEUM [Suspect]
     Active Substance: ALBIGLUTIDE

REACTIONS (2)
  - Blood glucose fluctuation [Not Recovered/Not Resolved]
  - Weight decreased [Not Recovered/Not Resolved]
